FAERS Safety Report 6248507-9 (Version None)
Quarter: 2009Q2

REPORT INFORMATION
  Report Type: 
  Country: None (occurrence: None)
  Receive Date: 20090629
  Receipt Date: 20090624
  Transmission Date: 20091009
  Serious: Yes (Death, Other)
  Sender: FDA-Public Use
  Company Number: BR-ROCHE-640255

PATIENT
  Sex: Male
  Weight: 72 kg

DRUGS (6)
  1. CLONAZEPAM [Suspect]
     Indication: SLEEP DISORDER THERAPY
     Dosage: ROUTE: PROBE (TUBE), DOSE: 2.5 MG/ML, INDICATION: TO CALM, TO SLEEP
     Route: 050
     Dates: start: 20081101, end: 20090214
  2. BEROTEC [Concomitant]
     Indication: FATIGUE
     Dates: start: 20080801
  3. ATROVENT [Concomitant]
     Indication: FATIGUE
     Dates: start: 20080801
  4. CAPTOPRIL [Concomitant]
     Dates: start: 20081206
  5. CARDILOL [Concomitant]
     Dates: start: 20081206
  6. SEROQUEL [Concomitant]
     Indication: SLEEP DISORDER THERAPY
     Dosage: ADDITIONAL INDICATION: PSYCHIATRIC DISORDER
     Dates: start: 20081101

REACTIONS (3)
  - BACTERIAL INFECTION [None]
  - NEOPLASM [None]
  - WEIGHT INCREASED [None]
